FAERS Safety Report 18277650 (Version 4)
Quarter: 2021Q4

REPORT INFORMATION
  Report Type: Spontaneous
  Country: FI (occurrence: FI)
  Receive Date: 20200917
  Receipt Date: 20211018
  Transmission Date: 20220303
  Serious: Yes (Hospitalization, Other)
  Sender: FDA-Public Use
  Company Number: FI-JNJFOC-20200906783

PATIENT
  Age: 52 Year
  Sex: Male
  Weight: 75 kg

DRUGS (6)
  1. TREMFYA [Suspect]
     Active Substance: GUSELKUMAB
     Indication: Psoriasis
     Route: 058
     Dates: start: 202002
  2. TREMFYA [Suspect]
     Active Substance: GUSELKUMAB
  3. TREMFYA [Suspect]
     Active Substance: GUSELKUMAB
  4. PREDNISOLONE [Concomitant]
     Active Substance: PREDNISOLONE
  5. HYDROXYCHLOROQUINE SULFATE [Concomitant]
     Active Substance: HYDROXYCHLOROQUINE SULFATE
  6. CEFTRIAXONE [Concomitant]
     Active Substance: CEFTRIAXONE

REACTIONS (4)
  - Pulmonary embolism [Unknown]
  - Systemic lupus erythematosus [Unknown]
  - Antiphospholipid syndrome [Unknown]
  - Lupus endocarditis [Unknown]

NARRATIVE: CASE EVENT DATE: 20200201
